FAERS Safety Report 11121342 (Version 1)
Quarter: 2015Q2

REPORT INFORMATION
  Report Type: Spontaneous
  Country: US (occurrence: US)
  Receive Date: 20150519
  Receipt Date: 20150519
  Transmission Date: 20150821
  Serious: No
  Sender: FDA-Public Use
  Company Number: US-BAYER-2015-204045

PATIENT
  Age: 18 Year
  Sex: Female
  Weight: 61 kg

DRUGS (2)
  1. ALEVE [Suspect]
     Active Substance: NAPROXEN SODIUM
     Dosage: 2 DF, UNK
     Route: 048
     Dates: start: 20150428, end: 20150429
  2. ADVIL [IBUPROFEN] [Suspect]
     Active Substance: IBUPROFEN
     Dosage: 2 UNK, UNK
     Route: 048
     Dates: start: 20150502

REACTIONS (5)
  - Throat irritation [Unknown]
  - Pharyngeal oedema [Unknown]
  - Eye pruritus [Unknown]
  - Adverse event [Unknown]
  - Ear pruritus [Unknown]

NARRATIVE: CASE EVENT DATE: 20150428
